FAERS Safety Report 7768985-3 (Version None)
Quarter: 2011Q3

REPORT INFORMATION
  Report Type: 
  Country: None (occurrence: None)
  Receive Date: 20110922
  Receipt Date: 20101221
  Transmission Date: 20111222
  Serious: No
  Sender: FDA-Public Use
  Company Number: US-ASTRAZENECA-2010SE60177

PATIENT
  Age: 78 Year
  Sex: Female
  Weight: 52.6 kg

DRUGS (7)
  1. STALIEN [Concomitant]
     Indication: DEMENTIA
  2. VITAMIN D [Concomitant]
  3. FOLIC ACID [Concomitant]
  4. LEXAPRO [Concomitant]
     Indication: DEMENTIA
  5. NAMENDA [Concomitant]
  6. EXELON [Concomitant]
     Indication: DEMENTIA
  7. SEROQUEL XR [Suspect]
     Route: 048

REACTIONS (2)
  - PARKINSON'S DISEASE [None]
  - DEMENTIA [None]
